FAERS Safety Report 8886937 (Version 1)
Quarter: 2012Q4

REPORT INFORMATION
  Report Type: 
  Country: SA (occurrence: SA)
  Receive Date: 20121105
  Receipt Date: 20121105
  Transmission Date: 20130627
  Serious: Yes (Death, Hospitalization)
  Sender: FDA-Public Use
  Company Number: PHHY2012SA100230

PATIENT
  Age: 18 Month
  Sex: Male

DRUGS (8)
  1. PREDNISOLONE SANDOZ [Suspect]
     Indication: NEPHROTIC SYNDROME
     Dosage: 60 mg/m2, per day
     Route: 048
  2. CICLOSPORIN [Concomitant]
     Indication: FOCAL SEGMENTAL GLOMERULOSCLEROSIS
     Dosage: 5 mg/kg, UNK
     Route: 048
  3. FUROSEMIDE [Concomitant]
     Route: 048
  4. FUROSEMIDE [Concomitant]
     Route: 042
  5. PENICILLIN NOS [Concomitant]
     Indication: PROPHYLAXIS
     Route: 048
  6. CAPTOPRIL [Concomitant]
     Indication: PROPHYLAXIS
  7. AMLODIPINE [Concomitant]
     Indication: PROPHYLAXIS
  8. CYCLOPHOSPHAMIDE [Concomitant]
     Route: 048

REACTIONS (10)
  - Renal failure chronic [Fatal]
  - Hyperkalaemia [Fatal]
  - Oliguria [Fatal]
  - Oedema [Fatal]
  - Fluid overload [Fatal]
  - Renal impairment [Fatal]
  - Focal segmental glomerulosclerosis [Unknown]
  - Drug resistance [Unknown]
  - Nephrotic syndrome [Unknown]
  - Drug ineffective [Unknown]
